FAERS Safety Report 9331193 (Version 1)
Quarter: 2013Q2

REPORT INFORMATION
  Report Type: Spontaneous
  Country: US (occurrence: US)
  Receive Date: 20130605
  Receipt Date: 20130605
  Transmission Date: 20140414
  Serious: Yes (Other)
  Sender: FDA-Public Use
  Company Number: US-MYLANLABS-2013S1011825

PATIENT
  Age: 66 Year
  Sex: Female

DRUGS (5)
  1. FOSAMAX [Suspect]
     Route: 048
     Dates: start: 199908, end: 200604
  2. BONIVA [Suspect]
     Route: 048
     Dates: start: 200601, end: 201107
  3. ALENDRONATE SODIUM [Suspect]
     Route: 048
     Dates: start: 200802, end: 201006
  4. ALENDRONATE SODIUM TABLETS USP [Suspect]
     Route: 048
     Dates: start: 200901, end: 200909
  5. ALENDRONATE SODIUM [Suspect]
     Route: 048
     Dates: start: 201002, end: 201008

REACTIONS (3)
  - Femur fracture [Not Recovered/Not Resolved]
  - Low turnover osteopathy [Not Recovered/Not Resolved]
  - Toxicity to various agents [Not Recovered/Not Resolved]
